FAERS Safety Report 25872847 (Version 1)
Quarter: 2025Q4

REPORT INFORMATION
  Report Type: Spontaneous
  Country: US (occurrence: US)
  Receive Date: 20251002
  Receipt Date: 20251002
  Transmission Date: 20260118
  Serious: No
  Sender: ROCHE
  Company Number: US-ROCHE-10000395025

PATIENT
  Sex: Female
  Weight: 61.23 kg

DRUGS (3)
  1. KADCYLA [Suspect]
     Active Substance: ADO-TRASTUZUMAB EMTANSINE
     Indication: HER2 positive breast cancer
     Dosage: PATIENT HAS A PORT
     Route: 042
     Dates: start: 20250716
  2. TAGRISSO [Concomitant]
     Active Substance: OSIMERTINIB
     Indication: Lung carcinoma cell type unspecified stage IV
     Route: 048
     Dates: start: 201912
  3. KEPPRA [Concomitant]
     Active Substance: LEVETIRACETAM
     Indication: Epilepsy
     Dosage: EXTENDED RELEASE, LEVETIRACETAM
     Route: 048
     Dates: start: 201912

REACTIONS (1)
  - Pain [Recovered/Resolved]
